FAERS Safety Report 5698607-7 (Version None)
Quarter: 2008Q2

REPORT INFORMATION
  Report Type: 
  Country: None (occurrence: None)
  Receive Date: 20080408
  Receipt Date: 20061122
  Transmission Date: 20081010
  Serious: No
  Sender: FDA-Public Use
  Company Number: US-BAYER-US-2006-036983

PATIENT
  Age: 50 Year
  Sex: Female
  Weight: 72 kg

DRUGS (3)
  1. CLIMARA [Suspect]
     Indication: MENOPAUSAL SYMPTOMS
     Route: 062
     Dates: start: 20050401, end: 20061020
  2. CLIMARA [Suspect]
     Route: 062
     Dates: start: 20061020
  3. ATENOLOL [Concomitant]
     Dosage: UNIT DOSE: 150 MG
     Route: 048

REACTIONS (1)
  - APPLICATION SITE DISCOLOURATION [None]
